FAERS Safety Report 9440027 (Version 1)
Quarter: 2013Q3

REPORT INFORMATION
  Report Type: Spontaneous
  Country: DE (occurrence: DE)
  Receive Date: 20130805
  Receipt Date: 20130805
  Transmission Date: 20140515
  Serious: Yes (Hospitalization, Other)
  Sender: FDA-Public Use
  Company Number: DE-UCBSA-093664

PATIENT
  Age: 73 Year
  Sex: Male

DRUGS (2)
  1. LEVETIRACETAM [Suspect]
     Indication: EPILEPSY
  2. LEVETIRACETAM [Suspect]
     Indication: EPILEPSY
     Dosage: UPTITRATED UPTO 4000 MG PER DAY

REACTIONS (2)
  - Tonic convulsion [Recovered/Resolved]
  - Overdose [Unknown]
